FAERS Safety Report 17907288 (Version 1)
Quarter: 2020Q2

REPORT INFORMATION
  Report Type: Spontaneous
  Country: US (occurrence: US)
  Receive Date: 20200617
  Receipt Date: 20200617
  Transmission Date: 20200714
  Serious: Yes (Other)
  Sender: FDA-Public Use
  Company Number: None

PATIENT
  Age: 66 Year
  Sex: Male
  Weight: 94.41 kg

DRUGS (12)
  1. LISINOPRIL. [Concomitant]
     Active Substance: LISINOPRIL
  2. SUTENT [Suspect]
     Active Substance: SUNITINIB MALATE
     Indication: BLADDER CANCER
     Dosage: ?          OTHER FREQUENCY:50MG QD 28/42;?
     Route: 048
     Dates: start: 20190517, end: 20200512
  3. METOPROLOL SUCCINATE. [Concomitant]
     Active Substance: METOPROLOL SUCCINATE
  4. CLONIDINE. [Concomitant]
     Active Substance: CLONIDINE
  5. PREDNISONE. [Concomitant]
     Active Substance: PREDNISONE
  6. GLIPIZIDE. [Concomitant]
     Active Substance: GLIPIZIDE
  7. TRADJENTA [Concomitant]
     Active Substance: LINAGLIPTIN
  8. VITAMIN D [Concomitant]
     Active Substance: VITAMIN D NOS
  9. DOXAZOSIN [Concomitant]
     Active Substance: DOXAZOSIN MESYLATE
  10. LOVASTATIN. [Concomitant]
     Active Substance: LOVASTATIN
  11. ONDANSETRON [Concomitant]
     Active Substance: ONDANSETRON
  12. SUTENT [Suspect]
     Active Substance: SUNITINIB MALATE
     Indication: NEPHROPATHY
     Dosage: ?          OTHER FREQUENCY:50MG QD 28/42;?
     Route: 048
     Dates: start: 20190517, end: 20200512

REACTIONS (2)
  - Stevens-Johnson syndrome [None]
  - Rash [None]

NARRATIVE: CASE EVENT DATE: 20200512
